FAERS Safety Report 5328025-2 (Version None)
Quarter: 2007Q2

REPORT INFORMATION
  Report Type: 
  Country: None (occurrence: None)
  Receive Date: 20070517
  Receipt Date: 20070508
  Transmission Date: 20071010
  Serious: Yes (Other)
  Sender: FDA-Public Use
  Company Number: DE-PFIZER INC-2007038300

PATIENT
  Sex: Female

DRUGS (2)
  1. CHAMPIX [Suspect]
     Indication: EX-SMOKER
     Route: 048
  2. CO-DIOVAN [Concomitant]
     Route: 048

REACTIONS (1)
  - BLOOD PRESSURE DIASTOLIC INCREASED [None]
